FAERS Safety Report 8078412-7 (Version None)
Quarter: 2012Q1

REPORT INFORMATION
  Report Type: 
  Country: None (occurrence: None)
  Receive Date: 20120123
  Receipt Date: 20120109
  Transmission Date: 20120608
  Serious: Yes (Hospitalization, Other)
  Sender: FDA-Public Use
  Company Number: 2012MA000536

PATIENT
  Age: 28 Year
  Sex: Female

DRUGS (2)
  1. VENLAFAXINE HYDROCHLORIDE [Suspect]
     Indication: MAJOR DEPRESSION
     Dosage: 10 GM;X1;PO
     Route: 048
  2. VENLAFAXINE HYDROCHLORIDE [Suspect]
     Indication: INTENTIONAL OVERDOSE
     Dosage: 10 GM;X1;PO
     Route: 048

REACTIONS (18)
  - DIARRHOEA [None]
  - INTESTINAL ULCER [None]
  - BEZOAR [None]
  - ABDOMINAL PAIN LOWER [None]
  - ABDOMINAL RIGIDITY [None]
  - CONVULSION [None]
  - INTENTIONAL OVERDOSE [None]
  - TREMOR [None]
  - DECREASED APPETITE [None]
  - GASTROINTESTINAL OEDEMA [None]
  - GASTROINTESTINAL MUCOSAL NECROSIS [None]
  - WHITE BLOOD CELL COUNT INCREASED [None]
  - MEDICATION RESIDUE [None]
  - ARRHYTHMIA [None]
  - TACHYCARDIA [None]
  - BLOOD PRESSURE INCREASED [None]
  - INTESTINAL ISCHAEMIA [None]
  - RESPIRATORY RATE INCREASED [None]
